FAERS Safety Report 6199255-5 (Version None)
Quarter: 2009Q2

REPORT INFORMATION
  Report Type: 
  Country: None (occurrence: None)
  Receive Date: 20090519
  Receipt Date: 20090519
  Transmission Date: 20091009
  Serious: Yes (Death, Life-Threatening, Hospitalization)
  Sender: FDA-Public Use
  Company Number: None

PATIENT
  Age: 93 Year
  Sex: Male
  Weight: 106.3 kg

DRUGS (1)
  1. TARCEVA [Suspect]
     Indication: NON-SMALL CELL LUNG CANCER
     Dosage: 150MG ONCE DAILY PO 3-4 MONTHS
     Route: 048
     Dates: start: 20090201, end: 20090508

REACTIONS (6)
  - DIARRHOEA HAEMORRHAGIC [None]
  - DUODENAL ULCER [None]
  - HAEMORRHAGIC ANAEMIA [None]
  - PNEUMONIA [None]
  - RECTAL HAEMORRHAGE [None]
  - SMALL INTESTINAL HAEMORRHAGE [None]
